FAERS Safety Report 24817151 (Version 1)
Quarter: 2025Q1

REPORT INFORMATION
  Report Type: Other
  Country: TR (occurrence: TR)
  Receive Date: 20250108
  Receipt Date: 20250108
  Transmission Date: 20250409
  Serious: Yes (Hospitalization, Other)
  Sender: BAYSHORE PHARMACEUTICALS LLC
  Company Number: TR-BP-2024-11003

PATIENT
  Age: 67 Day
  Sex: Male

DRUGS (2)
  1. ETODOLAC [Suspect]
     Active Substance: ETODOLAC
     Route: 065
  2. AMPICILLIN AND SULBACTAM [Suspect]
     Active Substance: AMPICILLIN SODIUM\SULBACTAM SODIUM
     Route: 065

REACTIONS (1)
  - Acquired haemophilia [Recovered/Resolved]
